FAERS Safety Report 7484104-5 (Version None)
Quarter: 2011Q2

REPORT INFORMATION
  Report Type: 
  Country: None (occurrence: None)
  Receive Date: 20110517
  Receipt Date: 20080220
  Transmission Date: 20111010
  Serious: Yes (Death, Other)
  Sender: FDA-Public Use
  Company Number: US-BAYER-2011-006862

PATIENT
  Age: 67 Year
  Sex: Male
  Weight: 79 kg

DRUGS (19)
  1. LASIX [Concomitant]
     Dosage: UNK
     Route: 048
  2. CALCIUM CHLORIDE [Concomitant]
     Dosage: 1 G, UNK
     Route: 042
     Dates: start: 20051213
  3. AMIODARONE HCL [Concomitant]
     Dosage: 200 MG, UNK
     Route: 042
     Dates: start: 20051213
  4. ACETYLSALICYLIC ACID SRT [Concomitant]
     Dosage: 81 MG, QD
     Route: 048
  5. TRASYLOL [Suspect]
     Indication: CORONARY ARTERY BYPASS
     Dosage: 200 CC PRIME OF LOADING DOSE
     Route: 042
     Dates: start: 20051213
  6. TRASYLOL [Suspect]
     Indication: VALVULOPLASTY CARDIAC
  7. FRESH FROZEN PLASMA [Concomitant]
     Dosage: 2 U, UNK
     Route: 042
     Dates: start: 20051213
  8. FLOMAX [Concomitant]
     Dosage: 0.4 MG, QD
     Route: 048
  9. PLATELETS [Concomitant]
     Dosage: 2 U, UNK
     Route: 042
     Dates: start: 20051213
  10. DOXEPIN [Concomitant]
     Dosage: 25 MG, QD
     Route: 048
  11. ZOCOR [Concomitant]
     Dosage: 40 MG, QD
     Route: 048
  12. POTASSIUM CHLORIDE [Concomitant]
     Dosage: 10 MEQ, QD
     Route: 048
  13. CEFAZOLIN [Concomitant]
     Dosage: 1.5 G, UNK
     Route: 042
     Dates: start: 20051213
  14. RED BLOOD CELLS, CONCENTRATED [Concomitant]
     Dosage: 4 U, UNK
     Route: 042
     Dates: start: 20051213
  15. PLAVIX [Concomitant]
     Dosage: 75 MG, QD
     Route: 048
  16. XANAX [Concomitant]
     Dosage: 0.5 MG, TID
     Route: 048
  17. SODIUM BICARBONATE [Concomitant]
     Dosage: 50 CC PRIME
     Route: 042
     Dates: start: 20051213
  18. HEPARIN [Concomitant]
     Dosage: 20000 UNITS
     Route: 042
  19. ALBUMIN [ALBUMEN] [Concomitant]
     Dosage: 500 CC
     Route: 042
     Dates: start: 20051213

REACTIONS (18)
  - BLOOD PRESSURE ABNORMAL [None]
  - INJURY [None]
  - ANXIETY [None]
  - EMOTIONAL DISTRESS [None]
  - STRESS [None]
  - CARDIAC FAILURE [None]
  - LUNG INFILTRATION [None]
  - PAIN [None]
  - ATRIAL FIBRILLATION [None]
  - ENTEROCOCCAL BACTERAEMIA [None]
  - FEAR [None]
  - ARRHYTHMIA [None]
  - RENAL FAILURE [None]
  - RENAL FAILURE ACUTE [None]
  - UNEVALUABLE EVENT [None]
  - DEPRESSION [None]
  - ANHEDONIA [None]
  - FEAR OF DEATH [None]
